FAERS Safety Report 21053093 (Version 3)
Quarter: 2022Q3

REPORT INFORMATION
  Report Type: Spontaneous
  Country: US (occurrence: US)
  Receive Date: 20220707
  Receipt Date: 20220815
  Transmission Date: 20221027
  Serious: No
  Sender: FDA-Public Use
  Company Number: US-PFIZER INC-PV202200017370

PATIENT
  Age: 49 Year
  Sex: Female
  Weight: 39.92 kg

DRUGS (1)
  1. PAXLOVID [Suspect]
     Active Substance: NIRMATRELVIR\RITONAVIR
     Indication: COVID-19 treatment
     Dosage: UNK

REACTIONS (3)
  - Weight decreased [Recovering/Resolving]
  - Taste disorder [Recovering/Resolving]
  - Abdominal discomfort [Recovering/Resolving]
